FAERS Safety Report 11643960 (Version 1)
Quarter: 2015Q4

REPORT INFORMATION
  Report Type: Spontaneous
  Country: US (occurrence: None)
  Receive Date: 20151019
  Receipt Date: 20151019
  Transmission Date: 20160304
  Serious: Yes (Disabling)
  Sender: FDA-Public Use
  Company Number: None

PATIENT
  Age: 61 Year
  Sex: Female
  Weight: 95.26 kg

DRUGS (9)
  1. D3 [Concomitant]
     Active Substance: 25-HYDROXYCHOLECALCIFEROL, 5-TRANS-
  2. CHOLINE [Concomitant]
     Active Substance: CHOLINE
  3. MAGNESIUM [Concomitant]
     Active Substance: MAGNESIUM
  4. CALCIUM [Concomitant]
     Active Substance: CALCIUM
  5. AVELOX [Suspect]
     Active Substance: MOXIFLOXACIN HYDROCHLORIDE
     Indication: URINARY TRACT INFECTION
     Route: 048
     Dates: start: 20090721, end: 20090722
  6. QUINAPRIL [Concomitant]
     Active Substance: QUINAPRIL\QUINAPRIL HYDROCHLORIDE
  7. LEVOTHYROXINE. [Concomitant]
     Active Substance: LEVOTHYROXINE
  8. MULTIVITAMIN [Concomitant]
     Active Substance: VITAMINS
  9. K2 [Concomitant]
     Active Substance: JWH-018

REACTIONS (12)
  - Sciatica [None]
  - Movement disorder [None]
  - Walking aid user [None]
  - Loss of consciousness [None]
  - Palpitations [None]
  - Dizziness [None]
  - Poor quality sleep [None]
  - Muscular weakness [None]
  - Impaired driving ability [None]
  - Meniscus injury [None]
  - Myalgia [None]
  - Impaired work ability [None]

NARRATIVE: CASE EVENT DATE: 20090721
